FAERS Safety Report 16923267 (Version 1)
Quarter: 2019Q4

REPORT INFORMATION
  Report Type: Spontaneous
  Country: US (occurrence: US)
  Receive Date: 20190823
  Receipt Date: 20190823
  Transmission Date: 20200122
  Serious: No
  Sender: FDA-Public Use
  Company Number: None

PATIENT
  Age: 58 Year
  Sex: Female

DRUGS (1)
  1. AUSTEDO [Suspect]
     Active Substance: DEUTETRABENAZINE
     Indication: DYSKINESIA
     Route: 048
     Dates: start: 20190427, end: 201908

REACTIONS (4)
  - Weight increased [None]
  - Glucose tolerance impaired [None]
  - Hypoglycaemia [None]
  - Hunger [None]

NARRATIVE: CASE EVENT DATE: 20190601
